FAERS Safety Report 8019836-3 (Version None)
Quarter: 2012Q1

REPORT INFORMATION
  Report Type: 
  Country: None (occurrence: None)
  Receive Date: 20120103
  Receipt Date: 20111222
  Transmission Date: 20120608
  Serious: Yes (Hospitalization)
  Sender: FDA-Public Use
  Company Number: FR-ELI_LILLY_AND_COMPANY-FR201106005608

PATIENT
  Sex: Male

DRUGS (8)
  1. VITAMIN B-12 [Concomitant]
     Route: 030
  2. ALIMTA [Suspect]
     Indication: NON-SMALL CELL LUNG CANCER
     Dosage: 500 MG/M2, EVERY 3 WEEKS
     Route: 042
     Dates: start: 20110510
  3. PHENOBARBITAL TAB [Concomitant]
     Dosage: 100 MG, QD
     Route: 048
     Dates: start: 20101201, end: 20110701
  4. SPECIAFOLDINE [Concomitant]
     Dosage: 0.4 MG, QD
     Route: 048
  5. MEDROL [Concomitant]
     Indication: PROPHYLAXIS
     Dosage: 100 MG, QD
     Route: 048
  6. NEXIUM [Concomitant]
     Indication: PROPHYLAXIS
     Dosage: 40 MG, QD
     Dates: start: 20101201, end: 20110601
  7. INNOHEP [Concomitant]
     Indication: PULMONARY EMBOLISM
     Dosage: 0.7 ML, QD
     Route: 058
     Dates: start: 20100201, end: 20110701
  8. ACETAMINOPHEN AND CODEINE PHOSPHATE [Concomitant]
     Indication: PAIN
     Dosage: UNK, TID
     Route: 048
     Dates: start: 20110501

REACTIONS (4)
  - HAEMOGLOBIN DECREASED [None]
  - NEUTROPENIA [None]
  - HEPATOCELLULAR INJURY [None]
  - GENERAL PHYSICAL HEALTH DETERIORATION [None]
